FAERS Safety Report 5469523-0 (Version None)
Quarter: 2007Q3

REPORT INFORMATION
  Report Type: 
  Country: None (occurrence: None)
  Receive Date: 20070927
  Receipt Date: 20070921
  Transmission Date: 20080115
  Serious: Yes (Other)
  Sender: FDA-Public Use
  Company Number: B0478288A

PATIENT
  Age: 51 Year
  Sex: Female

DRUGS (3)
  1. ZEFIX [Suspect]
     Indication: HEPATITIS B POSITIVE
     Route: 048
     Dates: start: 20070228, end: 20070627
  2. ITRIZOLE [Suspect]
     Indication: PNEUMONIA
     Route: 048
     Dates: start: 20070326, end: 20070614
  3. LEVOFLOXACIN [Suspect]
     Indication: PNEUMONIA
     Route: 048
     Dates: start: 20070531, end: 20070614

REACTIONS (5)
  - IMPAIRED HEALING [None]
  - MYELODYSPLASTIC SYNDROME [None]
  - PANCYTOPENIA [None]
  - PNEUMONIA [None]
  - PYREXIA [None]
